FAERS Safety Report 23101279 (Version 1)
Quarter: 2023Q4

REPORT INFORMATION
  Report Type: Spontaneous
  Country: US (occurrence: US)
  Receive Date: 20231024
  Receipt Date: 20231024
  Transmission Date: 20240110
  Serious: Yes (Other)
  Sender: FDA-Public Use
  Company Number: US-PFIZER INC-202300336141

PATIENT
  Age: 90 Year
  Sex: Female
  Weight: 88.2 kg

DRUGS (2)
  1. EXEMESTANE [Suspect]
     Active Substance: EXEMESTANE
     Indication: Breast cancer female
     Dosage: UNK
  2. EVEROLIMUS [Suspect]
     Active Substance: EVEROLIMUS
     Indication: Breast cancer female
     Dosage: UNK

REACTIONS (2)
  - Cytopenia [Unknown]
  - Postoperative delirium [Unknown]
